FAERS Safety Report 5282210-7 (Version None)
Quarter: 2007Q1

REPORT INFORMATION
  Report Type: 
  Country: None (occurrence: None)
  Receive Date: 20070330
  Receipt Date: 20070319
  Transmission Date: 20070707
  Serious: Yes (Other)
  Sender: FDA-Public Use
  Company Number: US-PFIZER INC-2007021547

PATIENT
  Sex: Female
  Weight: 61.2 kg

DRUGS (2)
  1. CHANTIX [Suspect]
     Indication: EX-SMOKER
  2. ALL OTHER THERAPEUTIC PRODUCTS [Suspect]
     Indication: DEPRESSION

REACTIONS (5)
  - BLOOD GLUCOSE INCREASED [None]
  - CARDIAC DISORDER [None]
  - CHEST PAIN [None]
  - FATIGUE [None]
  - HYPERSOMNIA [None]
